FAERS Safety Report 4420625-7 (Version None)
Quarter: 2004Q2

REPORT INFORMATION
  Report Type: 
  Country: None (occurrence: None)
  Receive Date: 20040618
  Receipt Date: 20040116
  Transmission Date: 20050107
  Serious: Yes (Other)
  Sender: FDA-Public Use
  Company Number: US-SHR-03-014159

PATIENT

DRUGS (2)
  1. FLUDARA [Suspect]
  2. RITUXAN [Concomitant]

REACTIONS (1)
  - DISEASE PROGRESSION [None]
